FAERS Safety Report 9726674 (Version 1)
Quarter: 2013Q4

REPORT INFORMATION
  Report Type: Spontaneous
  Country: AU (occurrence: AU)
  Receive Date: 20131203
  Receipt Date: 20131203
  Transmission Date: 20140711
  Serious: Yes (Other)
  Sender: FDA-Public Use
  Company Number: AU-ABBVIE-13P-008-1173623-00

PATIENT
  Sex: 0

DRUGS (1)
  1. HUMIRA [Suspect]
     Indication: CROHN^S DISEASE

REACTIONS (4)
  - Systemic lupus erythematosus [Unknown]
  - Antinuclear antibody positive [Unknown]
  - Polyarthritis [Unknown]
  - Crohn^s disease [Unknown]
